FAERS Safety Report 6067816-X (Version None)
Quarter: 2009Q1

REPORT INFORMATION
  Report Type: 
  Country: None (occurrence: None)
  Receive Date: 20090203
  Receipt Date: 20090119
  Transmission Date: 20090719
  Serious: Yes (Hospitalization)
  Sender: FDA-Public Use
  Company Number: 2009MB000004

PATIENT
  Age: 58 Year
  Sex: Female

DRUGS (12)
  1. CEPHALEXIN [Suspect]
     Indication: DRUG USE FOR UNKNOWN INDICATION
     Dosage: X1; PO
     Route: 048
     Dates: start: 19890101
  2. CEPHALEXIN [Suspect]
     Indication: URINARY TRACT INFECTION
     Dosage: X1; PO
     Route: 048
     Dates: start: 19890101
  3. CEPHALEXIN [Suspect]
     Indication: DRUG USE FOR UNKNOWN INDICATION
     Dosage: X1; PO
     Route: 048
     Dates: start: 20020101
  4. CEPHALEXIN [Suspect]
     Indication: URINARY TRACT INFECTION
     Dosage: X1; PO
     Route: 048
     Dates: start: 20020101
  5. DURICEF [Suspect]
     Indication: DRUG USE FOR UNKNOWN INDICATION
     Dates: start: 19890101
  6. CEFACLOR [Suspect]
     Indication: TRACHEOBRONCHITIS
     Dosage: 250 MG; X1
     Dates: start: 19940101, end: 19940101
  7. HEPARIN [Suspect]
     Indication: DRUG USE FOR UNKNOWN INDICATION
     Dates: start: 20020101
  8. FELDENE [Concomitant]
  9. ACETAMINOPHEN [Concomitant]
  10. FAMOTIDINE [Concomitant]
  11. ERYTHROMYCIN [Concomitant]
  12. ASPIRIN [Concomitant]

REACTIONS (17)
  - CHILLS [None]
  - DEEP VEIN THROMBOSIS [None]
  - DIALYSIS [None]
  - DISSEMINATED INTRAVASCULAR COAGULATION [None]
  - FATIGUE [None]
  - HAEMODIALYSIS [None]
  - HEADACHE [None]
  - HYPOXIA [None]
  - LETHARGY [None]
  - MYALGIA [None]
  - NAUSEA [None]
  - OLIGURIA [None]
  - PLATELET AGGREGATION [None]
  - THROMBOTIC THROMBOCYTOPENIC PURPURA [None]
  - TREMOR [None]
  - URINARY TRACT INFECTION [None]
  - VOMITING [None]
